FAERS Safety Report 7765445-0 (Version None)
Quarter: 2011Q3

REPORT INFORMATION
  Report Type: 
  Country: None (occurrence: None)
  Receive Date: 20110916
  Receipt Date: 20110906
  Transmission Date: 20111222
  Serious: Yes (Death)
  Sender: FDA-Public Use
  Company Number: DKLU1072964

PATIENT
  Age: 11 Month
  Sex: Female

DRUGS (5)
  1. SABRIL [Suspect]
     Indication: CONVULSION
     Dosage: 7.5 ML MILLILITRE(S), 2 IN 1 D, ORAL
     Route: 048
     Dates: start: 20110401
  2. TOPAMAX [Concomitant]
  3. KLONAPIN (CLONAZEPAM) [Concomitant]
  4. KEPPRA [Concomitant]
  5. VITAMIN B6 [Concomitant]

REACTIONS (1)
  - DEATH [None]
